FAERS Safety Report 5981452-2 (Version None)
Quarter: 2008Q4

REPORT INFORMATION
  Report Type: 
  Country: None (occurrence: None)
  Receive Date: 20081205
  Receipt Date: 20081126
  Transmission Date: 20090506
  Serious: Yes (Hospitalization)
  Sender: FDA-Public Use
  Company Number: US-GILEAD-2008-0019241

PATIENT
  Sex: Male

DRUGS (3)
  1. TRUVADA [Suspect]
     Indication: HIV INFECTION
  2. REYATAZ [Concomitant]
  3. NORVIR [Concomitant]

REACTIONS (3)
  - BLOOD CREATININE INCREASED [None]
  - OVERDOSE [None]
  - SUICIDE ATTEMPT [None]
